FAERS Safety Report 8583837-7 (Version None)
Quarter: 2012Q3

REPORT INFORMATION
  Report Type: 
  Country: None (occurrence: None)
  Receive Date: 20120810
  Receipt Date: 20120801
  Transmission Date: 20120928
  Serious: Yes (Hospitalization, Other)
  Sender: FDA-Public Use
  Company Number: US-009507513-2012SP022374

PATIENT

DRUGS (1)
  1. NUVARING [Suspect]
     Indication: CONTRACEPTION
     Dosage: UNK
     Dates: start: 20090701, end: 20090801

REACTIONS (4)
  - CHOLELITHIASIS [None]
  - PULMONARY EMBOLISM [None]
  - ALOPECIA [None]
  - ANTIPHOSPHOLIPID SYNDROME [None]
